FAERS Safety Report 22375311 (Version 4)
Quarter: 2023Q4

REPORT INFORMATION
  Report Type: Report from Study
  Country: BR (occurrence: BR)
  Receive Date: 20230527
  Receipt Date: 20231201
  Transmission Date: 20240109
  Serious: Yes (Other)
  Sender: FDA-Public Use
  Company Number: BR-002147023-NVSC2023BR118243

PATIENT
  Sex: Female

DRUGS (4)
  1. COSENTYX [Suspect]
     Active Substance: SECUKINUMAB
     Indication: Product used for unknown indication
     Dosage: UNK UNK, QMO
     Route: 065
  2. COSENTYX [Suspect]
     Active Substance: SECUKINUMAB
     Dosage: UNK UNK, QMO
     Route: 065
  3. AMOXICILLIN [Suspect]
     Active Substance: AMOXICILLIN
     Indication: Pharyngitis
     Dosage: UNK
     Route: 065
  4. AMOXICILLIN [Suspect]
     Active Substance: AMOXICILLIN
     Indication: Respiratory tract infection

REACTIONS (12)
  - Pathogen resistance [Unknown]
  - Respiratory tract infection [Recovering/Resolving]
  - Respiratory tract inflammation [Unknown]
  - Dry mouth [Not Recovered/Not Resolved]
  - Tonsillar disorder [Not Recovered/Not Resolved]
  - Decreased immune responsiveness [Unknown]
  - Dysphonia [Unknown]
  - Blood test abnormal [Unknown]
  - Pharyngitis [Recovering/Resolving]
  - Laryngitis [Recovering/Resolving]
  - Vulvovaginal candidiasis [Unknown]
  - Oral candidiasis [Unknown]
